FAERS Safety Report 11115375 (Version 2)
Quarter: 2015Q3

REPORT INFORMATION
  Report Type: Report from Study
  Country: US (occurrence: US)
  Receive Date: 20150515
  Receipt Date: 20150817
  Transmission Date: 20151125
  Serious: Yes (Other)
  Sender: FDA-Public Use
  Company Number: US-GILEAD-2015-0151996

PATIENT
  Age: 79 Year
  Sex: Female

DRUGS (14)
  1. GLIMEPIRIDE. [Concomitant]
     Active Substance: GLIMEPIRIDE
  2. PRAVASTATIN [Concomitant]
     Active Substance: PRAVASTATIN\PRAVASTATIN SODIUM
  3. TYLENOL [Concomitant]
     Active Substance: ACETAMINOPHEN
  4. LISINOPRIL. [Concomitant]
     Active Substance: LISINOPRIL
  5. FUROSEMIDE. [Concomitant]
     Active Substance: FUROSEMIDE
  6. METOCLOPRAMIDE. [Concomitant]
     Active Substance: METOCLOPRAMIDE
  7. MILK OF MAGNESIA [Concomitant]
     Active Substance: MAGNESIUM HYDROXIDE
  8. FLUOXETINE [Concomitant]
     Active Substance: FLUOXETINE\FLUOXETINE HYDROCHLORIDE
  9. NOVOLOG [Concomitant]
     Active Substance: INSULIN ASPART
  10. DILTIAZEM HYDROCHLORIDE EXTENDED RELEASE [Concomitant]
     Active Substance: DILTIAZEM HYDROCHLORIDE
  11. WARFARIN [Concomitant]
     Active Substance: WARFARIN
  12. AMBRISENTAN [Suspect]
     Active Substance: AMBRISENTAN
     Indication: PULMONARY ARTERIAL HYPERTENSION
     Dosage: 5 MG, QD
     Route: 065
     Dates: start: 20150423, end: 20150508
  13. METOPROLOL [Concomitant]
     Active Substance: METOPROLOL
  14. LANTUS [Concomitant]
     Active Substance: INSULIN GLARGINE

REACTIONS (8)
  - Pleural effusion [Unknown]
  - Dyspnoea [Not Recovered/Not Resolved]
  - Fatigue [Not Recovered/Not Resolved]
  - Asthenia [Not Recovered/Not Resolved]
  - Oedema peripheral [Unknown]
  - Pneumonia [Unknown]
  - Oxygen saturation decreased [Unknown]
  - Muscular weakness [Unknown]

NARRATIVE: CASE EVENT DATE: 20150423
